FAERS Safety Report 16598469 (Version 1)
Quarter: 2019Q3

REPORT INFORMATION
  Report Type: Report from Study
  Country: NL (occurrence: NL)
  Receive Date: 20190719
  Receipt Date: 20190719
  Transmission Date: 20191004
  Serious: Yes (Other)
  Sender: FDA-Public Use
  Company Number: NL-RECRO GAINESVILLE LLC-REPH-2019-000134

PATIENT
  Age: 59 Year
  Sex: Male

DRUGS (12)
  1. VERAPAMIL HYDROCHLORIDE SUSTAINED RELEASE [Suspect]
     Active Substance: VERAPAMIL HYDROCHLORIDE
     Indication: CARDIAC FAILURE
  2. DIGOXIN. [Concomitant]
     Active Substance: DIGOXIN
     Indication: ATRIAL FIBRILLATION
     Dosage: 0.25 MILLIGRAM, QD
  3. SPIRONOLACTONE. [Concomitant]
     Active Substance: SPIRONOLACTONE
     Indication: ATRIAL FIBRILLATION
     Dosage: 25 MILLIGRAM, QD
     Route: 048
  4. CAPTOPRIL. [Concomitant]
     Active Substance: CAPTOPRIL
     Indication: CARDIAC FAILURE
  5. VERAPAMIL HYDROCHLORIDE SUSTAINED RELEASE [Suspect]
     Active Substance: VERAPAMIL HYDROCHLORIDE
     Indication: ATRIAL FIBRILLATION
     Dosage: 120 MILLIGRAM, QD
     Route: 048
  6. CAPTOPRIL. [Concomitant]
     Active Substance: CAPTOPRIL
     Indication: ATRIAL FIBRILLATION
     Dosage: 25 MILLIGRAM, QD
  7. FRUSEMIDE                          /00032601/ [Concomitant]
     Active Substance: FUROSEMIDE
     Indication: ATRIAL FIBRILLATION
     Dosage: 80 MILLIGRAM, QD
  8. COUMARIN [Concomitant]
     Active Substance: COUMARIN
     Indication: CARDIAC FAILURE
  9. DIGOXIN. [Concomitant]
     Active Substance: DIGOXIN
     Indication: CARDIAC FAILURE
  10. FRUSEMIDE                          /00032601/ [Concomitant]
     Active Substance: FUROSEMIDE
     Indication: CARDIAC FAILURE
  11. SPIRONOLACTONE. [Concomitant]
     Active Substance: SPIRONOLACTONE
     Indication: CARDIAC FAILURE
  12. COUMARIN [Concomitant]
     Active Substance: COUMARIN
     Indication: ATRIAL FIBRILLATION
     Dosage: UNK

REACTIONS (2)
  - Erythromelalgia [Recovered/Resolved]
  - Off label use [Recovered/Resolved]
